FAERS Safety Report 15208826 (Version 1)
Quarter: 2018Q3

REPORT INFORMATION
  Report Type: Spontaneous
  Country: US (occurrence: US)
  Receive Date: 20180629
  Receipt Date: 20180629
  Transmission Date: 20181010
  Serious: No
  Sender: FDA-Public Use
  Company Number: None

PATIENT
  Age: 63 Year
  Sex: Female
  Weight: 74.25 kg

DRUGS (10)
  1. XIIDRA [Suspect]
     Active Substance: LIFITEGRAST
     Indication: DRY EYE
     Dosage: ?          QUANTITY:.2 ML;?
     Route: 047
     Dates: start: 20180606, end: 20180610
  2. PROCARDIA XL [Concomitant]
     Active Substance: NIFEDIPINE
  3. WP THYROID [Concomitant]
     Active Substance: THYROID, PORCINE
  4. CALCIUM [Concomitant]
     Active Substance: CALCIUM
  5. I THROID IODINE [Concomitant]
  6. BIOTE HORMONE REPLACEMENT PELLETS [Concomitant]
  7. PROGESTERONE. [Concomitant]
     Active Substance: PROGESTERONE
  8. VITAMIN K2 [Concomitant]
     Active Substance: MENAQUINONE 6
  9. VITAMIN D [Concomitant]
     Active Substance: CHOLECALCIFEROL
  10. FISH OIL [Concomitant]
     Active Substance: FISH OIL

REACTIONS (9)
  - Eyelid disorder [None]
  - Eye pain [None]
  - Oropharyngeal pain [None]
  - Foreign body sensation in eyes [None]
  - Vision blurred [None]
  - Upper-airway cough syndrome [None]
  - Skin exfoliation [None]
  - Rhinorrhoea [None]
  - Eye pruritus [None]

NARRATIVE: CASE EVENT DATE: 20180610
